FAERS Safety Report 9919848 (Version 3)
Quarter: 2014Q2

REPORT INFORMATION
  Report Type: Spontaneous
  Country: US (occurrence: US)
  Receive Date: 20140224
  Receipt Date: 20140424
  Transmission Date: 20141212
  Serious: No
  Sender: FDA-Public Use
  Company Number: US-PFIZER INC-2014049348

PATIENT
  Age: 50 Year
  Sex: Female

DRUGS (4)
  1. LYRICA [Suspect]
     Dosage: UNK
  2. LYRICA [Suspect]
     Dosage: 1/2 DOSE TAKING ONLY AT NIGHT
  3. LYRICA [Suspect]
     Dosage: 75 MG PER NIGHT
     Dates: start: 201402
  4. LYRICA [Suspect]
     Dosage: 100 MG, 2X/DAY
     Route: 048

REACTIONS (1)
  - Pain [Unknown]
